FAERS Safety Report 5860366-2 (Version None)
Quarter: 2008Q3

REPORT INFORMATION
  Report Type: 
  Country: None (occurrence: None)
  Receive Date: 20080827
  Receipt Date: 20080820
  Transmission Date: 20090109
  Serious: Yes (Hospitalization)
  Sender: FDA-Public Use
  Company Number: DE-ABBOTT-08P-062-0471900-00

PATIENT
  Sex: Male

DRUGS (3)
  1. NORVIR [Suspect]
     Indication: DRUG USE FOR UNKNOWN INDICATION
     Route: 048
     Dates: start: 20080819, end: 20080819
  2. FOSAMPRENAVIR [Suspect]
     Indication: DRUG USE FOR UNKNOWN INDICATION
     Route: 048
     Dates: start: 20080819, end: 20080819
  3. EMTRICITABINE [Suspect]
     Indication: DRUG USE FOR UNKNOWN INDICATION
     Route: 048
     Dates: start: 20080819, end: 20080819

REACTIONS (2)
  - ACCIDENTAL EXPOSURE [None]
  - SUICIDE ATTEMPT [None]
